FAERS Safety Report 4417460-2 (Version None)
Quarter: 2004Q3

REPORT INFORMATION
  Report Type: 
  Country: None (occurrence: None)
  Receive Date: 20040803
  Receipt Date: 20040719
  Transmission Date: 20050211
  Serious: Yes (Other)
  Sender: FDA-Public Use
  Company Number: 201625

PATIENT
  Age: 28 Year
  Sex: Male

DRUGS (2)
  1. AVONEX [Suspect]
     Indication: MULTIPLE SCLEROSIS
     Dosage: 30 MCG QW IM
     Route: 030
     Dates: start: 20040718
  2. ALEVE [Concomitant]

REACTIONS (4)
  - CHILLS [None]
  - HEADACHE [None]
  - PYREXIA [None]
  - TREMOR [None]
